FAERS Safety Report 10738991 (Version 1)
Quarter: 2015Q1

REPORT INFORMATION
  Report Type: Spontaneous
  Country: FR (occurrence: FR)
  Receive Date: 20150126
  Receipt Date: 20150126
  Transmission Date: 20150721
  Serious: Yes (Hospitalization, Other)
  Sender: FDA-Public Use
  Company Number: FR-GLAXOSMITHKLINE-B0854995A

PATIENT
  Age: 9 Year
  Sex: Female

DRUGS (9)
  1. CODENFAN [Suspect]
     Active Substance: CODEINE
     Indication: PAIN
     Route: 048
     Dates: start: 20120924, end: 20120925
  2. BRISTOPEN [Suspect]
     Active Substance: OXACILLIN SODIUM
     Indication: MEDIASTINAL ABSCESS
     Route: 065
     Dates: start: 20121005, end: 20121011
  3. RIFADINE [Suspect]
     Active Substance: RIFAMPIN
     Indication: MEDIASTINAL ABSCESS
     Route: 065
     Dates: start: 20121025, end: 20121029
  4. PERFALGAN [Suspect]
     Active Substance: ACETAMINOPHEN
     Indication: PYREXIA
     Route: 042
     Dates: start: 20120924, end: 20120925
  5. AUGMENTIN [Suspect]
     Active Substance: AMOXICILLIN\CLAVULANATE POTASSIUM
     Indication: MEDIASTINAL ABSCESS
     Route: 065
     Dates: start: 20121002, end: 20121005
  6. COLCHICINE. [Suspect]
     Active Substance: COLCHICINE
     Indication: PERICARDITIS
     Route: 065
     Dates: start: 20121002, end: 20121024
  7. CLINDAMYCIN [Suspect]
     Active Substance: CLINDAMYCIN\CLINDAMYCIN PHOSPHATE
     Indication: MEDIASTINAL ABSCESS
     Route: 065
     Dates: start: 20121002, end: 20121024
  8. AMIKACIN [Suspect]
     Active Substance: AMIKACIN
     Indication: MEDIASTINAL ABSCESS
     Route: 065
     Dates: start: 20121002, end: 20121004
  9. ORBENINE [Suspect]
     Active Substance: CLOXACILLIN SODIUM
     Indication: MEDIASTINAL ABSCESS
     Route: 065
     Dates: start: 20121011, end: 20121024

REACTIONS (7)
  - Face oedema [Recovered/Resolved]
  - Pruritus [Recovered/Resolved]
  - Rash generalised [Recovered/Resolved]
  - Pyrexia [Recovered/Resolved]
  - Hepatocellular injury [Unknown]
  - Eosinophilia [Unknown]
  - Drug reaction with eosinophilia and systemic symptoms [Recovered/Resolved]

NARRATIVE: CASE EVENT DATE: 201210
